FAERS Safety Report 23902501 (Version 1)
Quarter: 2024Q2

REPORT INFORMATION
  Report Type: Spontaneous
  Country: PL (occurrence: None)
  Receive Date: 20240527
  Receipt Date: 20240527
  Transmission Date: 20240715
  Serious: Yes (Life-Threatening, Hospitalization)
  Sender: FDA-Public Use
  Company Number: 2024A119382

PATIENT
  Age: 66 Year
  Sex: Female
  Weight: 94 kg

DRUGS (7)
  1. DAPAGLIFLOZIN [Suspect]
     Active Substance: DAPAGLIFLOZIN
     Indication: Nephritic syndrome
     Route: 048
     Dates: end: 20240307
  2. CANDESARTAN CILEXETIL [Concomitant]
     Active Substance: CANDESARTAN CILEXETIL
     Indication: Essential hypertension
     Dosage: THERAPY ONGOING
     Route: 048
  3. ESOMEPRAZOLE MAGNESIUM [Concomitant]
     Active Substance: ESOMEPRAZOLE MAGNESIUM
     Dosage: THERAPY ONGOING
     Route: 048
  4. BISOPROLOL [Concomitant]
     Active Substance: BISOPROLOL\BISOPROLOL FUMARATE
     Indication: Essential hypertension
     Dosage: THERAPY ONGOING
     Route: 048
  5. LERCANIDIPINE [Concomitant]
     Active Substance: LERCANIDIPINE
     Indication: Essential hypertension
     Dosage: THERAPY ONGOING
     Route: 048
  6. HYDROCHLOROTHIAZIDE [Concomitant]
     Active Substance: HYDROCHLOROTHIAZIDE
     Indication: Essential hypertension
     Dosage: THERAPY ONGOING25.0MG UNKNOWN
     Route: 048
  7. HYDROCHLOROTHIAZIDE [Concomitant]
     Active Substance: HYDROCHLOROTHIAZIDE
     Indication: Nephritic syndrome
     Dosage: THERAPY ONGOING25.0MG UNKNOWN
     Route: 048

REACTIONS (3)
  - Urosepsis [Recovered/Resolved]
  - Blood culture positive [Recovered/Resolved]
  - Culture urine positive [Recovered/Resolved]

NARRATIVE: CASE EVENT DATE: 20240307
